FAERS Safety Report 7583722-3 (Version None)
Quarter: 2011Q2

REPORT INFORMATION
  Report Type: 
  Country: None (occurrence: None)
  Receive Date: 20110630
  Receipt Date: 20110623
  Transmission Date: 20111010
  Serious: Yes (Other)
  Sender: FDA-Public Use
  Company Number: B0729591A

PATIENT
  Sex: Male

DRUGS (1)
  1. PROMACTA [Suspect]

REACTIONS (1)
  - NEUTROPENIA [None]
